FAERS Safety Report 13609134 (Version 2)
Quarter: 2017Q3

REPORT INFORMATION
  Report Type: Spontaneous
  Country: KR (occurrence: KR)
  Receive Date: 20170602
  Receipt Date: 20170720
  Transmission Date: 20171127
  Serious: Yes (Other)
  Sender: FDA-Public Use
  Company Number: KR-009507513-1705KOR015926

PATIENT
  Age: 65 Year
  Sex: Female
  Weight: 69.2 kg

DRUGS (35)
  1. SODIUM BICARBONATE. [Concomitant]
     Active Substance: SODIUM BICARBONATE
     Dosage: 10000 MG, QD, ROUTE: GARGLING
     Dates: start: 20170222
  2. SUCRALFATE. [Concomitant]
     Active Substance: SUCRALFATE
     Indication: PROPHYLAXIS AGAINST GASTROINTESTINAL ULCER
     Dosage: 15 ML, TID
     Route: 048
     Dates: start: 20170215, end: 20170221
  3. EMEND (FOSAPREPITANT DIMEGLUMINE) [Suspect]
     Active Substance: FOSAPREPITANT DIMEGLUMINE
     Indication: PROPHYLAXIS OF NAUSEA AND VOMITING
     Dosage: 150 MG, ONCE
     Route: 042
     Dates: start: 20170216, end: 20170216
  4. PANTOPRAZOLE [Concomitant]
     Active Substance: PANTOPRAZOLE
     Indication: PROPHYLAXIS AGAINST GASTROINTESTINAL ULCER
     Dosage: 40 MG, QD
     Route: 048
     Dates: start: 20170215
  5. PHENYTOIN. [Concomitant]
     Active Substance: PHENYTOIN
     Indication: PROPHYLAXIS
     Dosage: 300 MG, TID
     Route: 048
     Dates: start: 20170215, end: 20170215
  6. BUSULFAN. [Concomitant]
     Active Substance: BUSULFAN
     Indication: ACUTE MYELOID LEUKAEMIA
     Dosage: 201 MG, ONCE
     Route: 042
     Dates: start: 20170216, end: 20170217
  7. SODIUM BICARBONATE. [Concomitant]
     Active Substance: SODIUM BICARBONATE
     Indication: PROPHYLAXIS
     Dosage: 10000 MG, ONCE, GARGLING
     Route: 048
     Dates: start: 20170215, end: 20170215
  8. PHENYTOIN. [Concomitant]
     Active Substance: PHENYTOIN
     Dosage: 300 MG, QD
     Route: 048
     Dates: start: 20170216, end: 20170217
  9. SEPTRIN [Concomitant]
     Active Substance: SULFAMETHOXAZOLE\TRIMETHOPRIM
     Indication: INFECTION PROPHYLAXIS
     Dosage: 1 TABLET, BID
     Route: 048
     Dates: start: 20170215, end: 20170220
  10. MICAFUNGIN [Concomitant]
     Active Substance: MICAFUNGIN
     Indication: ANTIFUNGAL PROPHYLAXIS
     Dosage: 50 MG, QD
     Route: 042
     Dates: start: 20170216
  11. ESOMEPRAZOLE MAGNESIUM. [Concomitant]
     Active Substance: ESOMEPRAZOLE MAGNESIUM
     Indication: GINGIVITIS
     Dosage: 20 MG, QD
     Route: 048
     Dates: start: 20170201, end: 20170203
  12. DEXAMETHASONE. [Concomitant]
     Active Substance: DEXAMETHASONE
     Indication: PRODUCT USED FOR UNKNOWN INDICATION
     Dosage: 10 MG, ONCE
     Route: 042
     Dates: start: 20170216, end: 20170216
  13. DEXAMETHASONE. [Concomitant]
     Active Substance: DEXAMETHASONE
     Dosage: 5 MG, ONCE
     Route: 042
     Dates: start: 20170217, end: 20170218
  14. DEXAMETHASONE. [Concomitant]
     Active Substance: DEXAMETHASONE
     Dosage: 5 MG, BID
     Route: 042
     Dates: start: 20170226, end: 20170227
  15. CIPROFLOXACIN. [Concomitant]
     Active Substance: CIPROFLOXACIN
     Indication: ANTIBIOTIC PROPHYLAXIS
     Dosage: 500 MG, BID
     Route: 048
     Dates: start: 20170216
  16. HEPARIN SODIUM. [Concomitant]
     Active Substance: HEPARIN SODIUM
     Indication: PROPHYLAXIS
     Dosage: 7000 UNIT, QD
     Route: 042
     Dates: start: 20170216
  17. FOLIC ACID. [Concomitant]
     Active Substance: FOLIC ACID
     Indication: VITAMIN SUPPLEMENTATION
     Dosage: 1 MG, BID
     Route: 048
     Dates: start: 20161018
  18. NAPROXEN. [Concomitant]
     Active Substance: NAPROXEN
     Indication: GINGIVITIS
     Dosage: 275 MG, TID
     Route: 048
     Dates: start: 20170201, end: 20170203
  19. RINO EBASTEL [Concomitant]
     Dosage: 1 DF, QD, 1 CAPSULE
     Route: 048
     Dates: start: 20170227, end: 20170227
  20. ACYCLOVIR. [Concomitant]
     Active Substance: ACYCLOVIR
     Indication: PROPHYLAXIS
     Dosage: 400 MG, TID
     Route: 048
     Dates: start: 20170215
  21. URSODIOL. [Concomitant]
     Active Substance: URSODIOL
     Indication: PROPHYLAXIS AGAINST GRAFT VERSUS HOST DISEASE
     Dosage: 200 MG, TID
     Route: 048
     Dates: start: 20170215
  22. ALLOPURINOL. [Concomitant]
     Active Substance: ALLOPURINOL
     Indication: PROPHYLAXIS
     Dosage: 100 MG, TID
     Route: 048
     Dates: start: 20170215, end: 20170301
  23. INSULIN ASPART [Concomitant]
     Active Substance: INSULIN ASPART
     Indication: DIABETES MELLITUS
     Dosage: 6 UNIT, QD
     Route: 058
     Dates: start: 20160216
  24. AUGMENTIN [Concomitant]
     Active Substance: AMOXICILLIN\CLAVULANATE POTASSIUM
     Indication: GINGIVITIS
     Dosage: 375 MG, TID
     Route: 048
     Dates: start: 20170201, end: 20170203
  25. DEXAMETHASONE. [Concomitant]
     Active Substance: DEXAMETHASONE
     Dosage: 5 MG, ONCE
     Route: 042
     Dates: start: 20170301, end: 20170301
  26. ONDANSETRON [Concomitant]
     Active Substance: ONDANSETRON
     Dosage: 8 MG, TID
     Route: 042
     Dates: start: 20170226, end: 20170227
  27. AMLODIPINE BESYLATE. [Concomitant]
     Active Substance: AMLODIPINE BESYLATE
     Indication: HYPERTENSION
     Dosage: 5 MG, QD
     Route: 048
     Dates: start: 20161205
  28. FLUDARABINE PHOSPHATE. [Concomitant]
     Active Substance: FLUDARABINE PHOSPHATE
     Indication: ACUTE MYELOID LEUKAEMIA
     Dosage: 54 MG, ONCE
     Route: 042
     Dates: start: 20170216, end: 20170221
  29. ONDANSETRON [Concomitant]
     Active Substance: ONDANSETRON
     Indication: PROPHYLAXIS OF NAUSEA AND VOMITING
     Dosage: 8 MG, BID
     Route: 042
     Dates: start: 20170216, end: 20170222
  30. POTASSIUM CHLORIDE. [Concomitant]
     Active Substance: POTASSIUM CHLORIDE
     Indication: ELECTROLYTE SUBSTITUTION THERAPY
     Dosage: 20 MEQ, QD
     Route: 042
     Dates: start: 20170215, end: 20170221
  31. POTASSIUM CHLORIDE. [Concomitant]
     Active Substance: POTASSIUM CHLORIDE
     Dosage: 10 DF, PRN, UNIT: MCQ
     Route: 042
     Dates: start: 20170226, end: 20170228
  32. FUROSEMIDE. [Concomitant]
     Active Substance: FUROSEMIDE
     Indication: OEDEMA
     Dosage: 15 MG, PRN
     Route: 042
     Dates: start: 20170216, end: 20170301
  33. PANCRON (PANCRELIPASE) [Concomitant]
     Indication: PROPHYLAXIS
     Dosage: 1 DF, TID
     Route: 048
     Dates: start: 20170201, end: 20170203
  34. RINO EBASTEL [Concomitant]
     Indication: ALLERGY PROPHYLAXIS
     Dosage: 1 DF, BID
     Route: 048
     Dates: start: 20170201, end: 20170203
  35. LINAGLIPTIN [Concomitant]
     Active Substance: LINAGLIPTIN
     Indication: DIABETES MELLITUS
     Dosage: 5 MG, QD
     Route: 048
     Dates: start: 20161210

REACTIONS (5)
  - Neutropenia [Recovering/Resolving]
  - Nausea [Recovered/Resolved]
  - Insomnia [Recovering/Resolving]
  - Oedema [Recovered/Resolved]
  - Rhinorrhoea [Recovered/Resolved]

NARRATIVE: CASE EVENT DATE: 20170216
